FAERS Safety Report 10041478 (Version 1)
Quarter: 2014Q1

REPORT INFORMATION
  Report Type: Spontaneous
  Country: IE (occurrence: IE)
  Receive Date: 20140327
  Receipt Date: 20140327
  Transmission Date: 20141002
  Serious: Yes (Other)
  Sender: FDA-Public Use
  Company Number: IE-ASTRAZENECA-2014SE19217

PATIENT
  Age: 52 Year
  Sex: Female
  Weight: 62 kg

DRUGS (9)
  1. PROPOFOL [Suspect]
     Indication: INDUCTION OF ANAESTHESIA
     Route: 042
  2. FENTANYL [Suspect]
     Indication: INDUCTION OF ANAESTHESIA
  3. MIDAZOLAM [Suspect]
     Indication: INDUCTION OF ANAESTHESIA
  4. OXYGEN [Concomitant]
  5. SEVOFLURANE [Concomitant]
     Route: 055
  6. DICLOFENAC [Concomitant]
     Indication: ANALGESIC THERAPY
     Route: 042
  7. PARACETAMOL [Concomitant]
     Indication: ANALGESIC THERAPY
     Route: 042
  8. DEXAMETHASONE [Concomitant]
     Indication: PROPHYLAXIS OF NAUSEA AND VOMITING
     Route: 042
  9. ONDANSETRON [Concomitant]
     Indication: PROPHYLAXIS OF NAUSEA AND VOMITING
     Route: 042

REACTIONS (2)
  - Motor dysfunction [Recovered/Resolved]
  - Hemiplegic migraine [Unknown]
